FAERS Safety Report 10052749 (Version 1)
Quarter: 2014Q1

REPORT INFORMATION
  Report Type: Spontaneous
  Country: DK (occurrence: None)
  Receive Date: 20140331
  Receipt Date: 20140331
  Transmission Date: 20141002
  Serious: Yes (Disabling)
  Sender: FDA-Public Use
  Company Number: 2256874

PATIENT
  Age: 2 Month
  Sex: Male

DRUGS (1)
  1. VANCOMYCIN HYDROCHLORIDE [Suspect]
     Indication: STAPHYLOCOCCAL INFECTION
     Dosage: SINGLE DOSE
     Route: 042
     Dates: start: 20090402

REACTIONS (7)
  - Abdominal pain [None]
  - Abnormal faeces [None]
  - Hearing impaired [None]
  - Incorrect route of drug administration [None]
  - Overdose [None]
  - Disturbance in attention [None]
  - Medication error [None]
